FAERS Safety Report 17792009 (Version 2)
Quarter: 2020Q2

REPORT INFORMATION
  Report Type: Spontaneous
  Country: US (occurrence: US)
  Receive Date: 20200515
  Receipt Date: 20200605
  Transmission Date: 20200714
  Serious: No
  Sender: FDA-Public Use
  Company Number: US-SUNOVION-2020SUN001455

PATIENT
  Age: 88 Year
  Sex: Female

DRUGS (1)
  1. LATUDA [Suspect]
     Active Substance: LURASIDONE HYDROCHLORIDE
     Dosage: 40 MG, QD
     Route: 048
     Dates: end: 20200506

REACTIONS (3)
  - Depression [Unknown]
  - Therapy cessation [Unknown]
  - Somnolence [Unknown]

NARRATIVE: CASE EVENT DATE: 20200507
